FAERS Safety Report 9297661 (Version 2)
Quarter: 2013Q3

REPORT INFORMATION
  Report Type: Spontaneous
  Country: US (occurrence: US)
  Receive Date: 20130520
  Receipt Date: 20130702
  Transmission Date: 20140515
  Serious: Yes (Other)
  Sender: FDA-Public Use
  Company Number: US-PFIZER INC-2013154373

PATIENT
  Age: 75 Year
  Sex: Female

DRUGS (2)
  1. FLECTOR [Suspect]
     Indication: PAIN
     Dosage: 1 DF, 1X/DAY (1 PATCH A DAY)
     Dates: end: 2010
  2. HYDROCODONE [Concomitant]
     Dosage: UNK

REACTIONS (2)
  - Haematochezia [Unknown]
  - Gastrointestinal disorder [Unknown]
